FAERS Safety Report 9288255 (Version 1)
Quarter: 2013Q2

REPORT INFORMATION
  Report Type: Report from Study
  Country: AU (occurrence: AU)
  Receive Date: 20130514
  Receipt Date: 20130514
  Transmission Date: 20140414
  Serious: Yes (Other)
  Sender: FDA-Public Use
  Company Number: PHHY2013AU019370

PATIENT
  Age: 74 Year
  Sex: Female

DRUGS (23)
  1. ACLASTA [Suspect]
     Indication: OSTEOPOROSIS
     Dosage: 5 MG, UNK
     Route: 042
     Dates: start: 20080225
  2. ACLASTA [Suspect]
     Dosage: 5 MG, UNK
     Route: 042
     Dates: start: 20090225
  3. ACLASTA [Suspect]
     Dosage: 5 MG, UNK
     Route: 042
     Dates: start: 20100125
  4. ACLASTA [Suspect]
     Dosage: 5 MG, UNK
     Route: 042
     Dates: start: 20110204
  5. ACLASTA [Suspect]
     Dosage: 5 MG, UNK
     Route: 042
     Dates: start: 20120207
  6. ACLASTA [Suspect]
     Dosage: 5 MG, UNK
     Route: 042
     Dates: start: 20130222
  7. BOOSTRIX IPV [Concomitant]
     Dosage: UNK UKN, UNK
     Dates: start: 20090312
  8. PANVAX H1N1 [Concomitant]
     Dosage: UNK UKN, UNK
     Dates: start: 20091119
  9. FLUVAX [Concomitant]
     Dosage: UNK UKN, UNK
     Dates: start: 20100326
  10. VAXIGRIP [Concomitant]
     Dosage: UNK UKN, UNK
     Dates: start: 20130321
  11. VIVAXIM                            /01462301/ [Concomitant]
     Dosage: UNK UKN, UNK
     Dates: start: 20130321
  12. ASPIRIN [Concomitant]
     Dosage: 1 DF, QD
  13. ATACAND [Concomitant]
     Dosage: 1 DF, PRN
  14. CAL 600 +D [Concomitant]
     Dosage: 1 DF, THRICE WEEKLY
  15. CARDIZEM CD [Concomitant]
     Dosage: 1 DF, IN MORNING AS REQUIRED
  16. DBL ASPIRIN [Concomitant]
     Dosage: 1 DF, PRN
  17. IBS SUPPORT [Concomitant]
     Dosage: 1 DF, QD
  18. NYOGEL [Concomitant]
     Dosage: 1 MG, UNK
  19. OMEGA-3                            /01168901/ [Concomitant]
     Dosage: 1 DF, QD
  20. OSTELIN VITAMIN D [Concomitant]
     Dosage: 1 DF, QD
  21. OVESTIN [Concomitant]
     Dosage: 1 MG/G, TWICE WEEKLY
     Route: 067
  22. VITAMIN C [Concomitant]
  23. XALATAN [Concomitant]
     Dosage: 1 DROP BEFORE BED

REACTIONS (7)
  - Lung consolidation [Unknown]
  - Diverticulum [Unknown]
  - Renal cyst [Unknown]
  - Large intestinal stenosis [Unknown]
  - Bradycardia [Recovered/Resolved]
  - Blood pressure abnormal [Recovered/Resolved]
  - Dizziness [Recovered/Resolved]
